FAERS Safety Report 14006863 (Version 1)
Quarter: 2017Q3

REPORT INFORMATION
  Report Type: Spontaneous
  Country: US (occurrence: None)
  Receive Date: 20170922
  Receipt Date: 20170922
  Transmission Date: 20171128
  Serious: Yes (Death, Life-Threatening, Hospitalization)
  Sender: FDA-Public Use
  Company Number: None

PATIENT
  Age: 71 Year
  Sex: Male

DRUGS (2)
  1. DOXYCYCLINE. [Suspect]
     Active Substance: DOXYCYCLINE
     Indication: INFECTION
     Route: 048
  2. CIPROFLOXACIN. [Suspect]
     Active Substance: CIPROFLOXACIN
     Indication: INFECTION
     Route: 048
     Dates: start: 20161229, end: 20170107

REACTIONS (9)
  - Confusional state [None]
  - Anal incontinence [None]
  - Disorientation [None]
  - Urethral fistula [None]
  - Respiratory failure [None]
  - Hypotension [None]
  - Speech disorder [None]
  - Clostridium difficile colitis [None]
  - Rectal haemorrhage [None]

NARRATIVE: CASE EVENT DATE: 20170203
